FAERS Safety Report 6173327-3 (Version None)
Quarter: 2009Q2

REPORT INFORMATION
  Report Type: 
  Country: None (occurrence: None)
  Receive Date: 20090428
  Receipt Date: 20090414
  Transmission Date: 20091009
  Serious: Yes (Death, Hospitalization, Other)
  Sender: FDA-Public Use
  Company Number: 2009000303

PATIENT
  Age: 55 Year
  Sex: Male

DRUGS (14)
  1. TARCEVA [Suspect]
     Indication: SQUAMOUS CELL CARCINOMA
     Dosage: (150 MG,QD),ORAL ; (100 MG,QD),ORAL
     Route: 048
     Dates: start: 20081119
  2. TARCEVA [Suspect]
     Indication: SQUAMOUS CELL CARCINOMA
     Dosage: (150 MG,QD),ORAL ; (100 MG,QD),ORAL
     Route: 048
     Dates: start: 20081201
  3. DIAZEPAM ROCHE UNSPEC. (DIAZEPAM) [Concomitant]
  4. METHYLPHENIDATE HCL [Concomitant]
  5. PERINDOPRIL ERBUMINE [Concomitant]
  6. AMLODIPINE [Concomitant]
  7. METRONIDAZOLE [Concomitant]
  8. CITALOPRAM HYDROBROMIDE [Concomitant]
  9. CALOGEN (CALCITOIN, SALMON) [Concomitant]
  10. NYSTATIN [Concomitant]
  11. FORTISIP (FORTISIP) [Concomitant]
  12. TAZOCIN (PIP/TAZO) [Concomitant]
  13. GENTAMICIN [Concomitant]
  14. MEGACE [Concomitant]

REACTIONS (9)
  - BLOOD ALBUMIN DECREASED [None]
  - DIARRHOEA [None]
  - MALIGNANT NEOPLASM PROGRESSION [None]
  - NEPHROTIC SYNDROME [None]
  - RASH [None]
  - RASH ERYTHEMATOUS [None]
  - RASH PAPULAR [None]
  - SQUAMOUS CELL CARCINOMA [None]
  - URINARY INCONTINENCE [None]
